FAERS Safety Report 15246974 (Version 3)
Quarter: 2018Q3

REPORT INFORMATION
  Report Type: Report from Study
  Country: None (occurrence: CO)
  Receive Date: 20180806
  Receipt Date: 20180918
  Transmission Date: 20181010
  Serious: Yes (Other)
  Sender: FDA-Public Use
  Company Number: CO-ABBVIE-18K-036-2305102-00

PATIENT
  Age: 20 Year
  Sex: Male
  Weight: 54 kg

DRUGS (1)
  1. HUMIRA [Suspect]
     Active Substance: ADALIMUMAB
     Indication: HIDRADENITIS
     Route: 058
     Dates: start: 20170710, end: 20171123

REACTIONS (7)
  - Weight decreased [Recovering/Resolving]
  - Nodule [Recovering/Resolving]
  - Hidradenitis [Recovering/Resolving]
  - Vision blurred [Unknown]
  - Testicular abscess [Recovering/Resolving]
  - Fistula [Recovering/Resolving]
  - Subcutaneous abscess [Recovering/Resolving]

NARRATIVE: CASE EVENT DATE: 201802
